FAERS Safety Report 12848071 (Version 1)
Quarter: 2016Q4

REPORT INFORMATION
  Report Type: Spontaneous
  Country: US (occurrence: US)
  Receive Date: 20161014
  Receipt Date: 20161014
  Transmission Date: 20170207
  Serious: No
  Sender: FDA-Public Use
  Company Number: US-JNJFOC-20160708143

PATIENT
  Sex: Female

DRUGS (2)
  1. MOTRIN IB [Suspect]
     Active Substance: IBUPROFEN
     Indication: TOOTHACHE
     Dosage: AGAIN TOOK ABOUT 2-3 WEEKS AGO IN 2016
     Route: 048
     Dates: start: 2016
  2. MOTRIN IB [Suspect]
     Active Substance: IBUPROFEN
     Indication: TOOTHACHE
     Dosage: TOOK ABOUT A YEAR AGO
     Route: 048

REACTIONS (3)
  - Product packaging issue [Unknown]
  - Therapeutic response unexpected [Unknown]
  - Expired product administered [Unknown]
